FAERS Safety Report 24971395 (Version 2)
Quarter: 2025Q1

REPORT INFORMATION
  Report Type: Spontaneous
  Country: CA (occurrence: CA)
  Receive Date: 20250214
  Receipt Date: 20250218
  Transmission Date: 20250409
  Serious: Yes (Hospitalization, Other)
  Sender: Kenvue
  Company Number: CA-KENVUE-20250203163

PATIENT

DRUGS (16)
  1. IBUPROFEN [Suspect]
     Active Substance: IBUPROFEN
     Indication: Product used for unknown indication
     Route: 065
  2. DICLOFENAC [Suspect]
     Active Substance: DICLOFENAC
     Indication: Product used for unknown indication
     Route: 065
  3. ETODOLAC [Suspect]
     Active Substance: ETODOLAC
     Indication: Product used for unknown indication
     Route: 065
  4. FENOPROFEN [Suspect]
     Active Substance: FENOPROFEN
     Indication: Product used for unknown indication
     Route: 065
  5. FLURBIPROFEN [Suspect]
     Active Substance: FLURBIPROFEN
     Indication: Product used for unknown indication
     Route: 065
  6. INDOMETHACIN [Suspect]
     Active Substance: INDOMETHACIN
     Indication: Product used for unknown indication
     Route: 065
  7. KETOPROFEN [Suspect]
     Active Substance: KETOPROFEN
     Indication: Product used for unknown indication
     Route: 065
  8. NABUMETONE [Suspect]
     Active Substance: NABUMETONE
     Indication: Product used for unknown indication
     Route: 065
  9. NAPROXEN [Suspect]
     Active Substance: NAPROXEN
     Indication: Product used for unknown indication
     Route: 065
  10. PIROXICAM [Suspect]
     Active Substance: PIROXICAM
     Indication: Product used for unknown indication
     Route: 065
  11. SALSALATE [Suspect]
     Active Substance: SALSALATE
     Indication: Product used for unknown indication
     Route: 065
  12. SULINDAC [Suspect]
     Active Substance: SULINDAC
     Indication: Product used for unknown indication
     Route: 065
  13. TIAPROFENIC ACID [Suspect]
     Active Substance: TIAPROFENIC ACID
     Indication: Product used for unknown indication
     Route: 065
  14. TOLMETIN [Suspect]
     Active Substance: TOLMETIN
     Indication: Product used for unknown indication
     Route: 065
  15. DIFLUNISAL [Suspect]
     Active Substance: DIFLUNISAL
     Indication: Product used for unknown indication
     Route: 065
  16. MECLOFENAMIC ACID [Suspect]
     Active Substance: MECLOFENAMIC ACID
     Indication: Product used for unknown indication
     Route: 065

REACTIONS (4)
  - Upper gastrointestinal perforation [Unknown]
  - Gastroduodenal haemorrhage [Unknown]
  - Gastroduodenal ulcer [Unknown]
  - Dyspepsia [Unknown]
